FAERS Safety Report 22905090 (Version 7)
Quarter: 2024Q1

REPORT INFORMATION
  Report Type: Report from Study
  Country: US (occurrence: US)
  Receive Date: 20230905
  Receipt Date: 20240329
  Transmission Date: 20240410
  Serious: Yes (Hospitalization, Other)
  Sender: FDA-Public Use
  Company Number: US-ACADIA PHARMACEUTICALS INC.-ACA-2023-TRF-003479

PATIENT
  Age: 2 Year
  Sex: Female

DRUGS (5)
  1. DAYBUE [Suspect]
     Active Substance: TROFINETIDE
     Indication: Rett syndrome
     Dosage: 30 MILLILITER, BID, VIA G TUBE
  2. ZOFRAN [Concomitant]
     Active Substance: ONDANSETRON HYDROCHLORIDE
  3. FAMOTIDINE [Concomitant]
     Active Substance: FAMOTIDINE
     Route: 048
  4. VITAMINS NOS [Concomitant]
     Active Substance: VITAMINS
  5. FIBER [Concomitant]
     Dosage: PACKET

REACTIONS (10)
  - Oropharyngeal pain [Not Recovered/Not Resolved]
  - Haematemesis [Not Recovered/Not Resolved]
  - Seizure [Not Recovered/Not Resolved]
  - Product use complaint [Unknown]
  - Constipation [Not Recovered/Not Resolved]
  - Constipation [Not Recovered/Not Resolved]
  - Blood iron decreased [Not Recovered/Not Resolved]
  - Constipation [Unknown]
  - Diarrhoea [Not Recovered/Not Resolved]
  - Vomiting [Unknown]

NARRATIVE: CASE EVENT DATE: 20230811
